FAERS Safety Report 14325828 (Version 1)
Quarter: 2017Q4

REPORT INFORMATION
  Report Type: Spontaneous
  Country: US (occurrence: US)
  Receive Date: 20171226
  Receipt Date: 20171226
  Transmission Date: 20180321
  Serious: Yes (Hospitalization)
  Sender: FDA-Public Use
  Company Number: US-ACTELION-A-US2017-162769

PATIENT
  Age: 85 Year
  Sex: Female

DRUGS (3)
  1. EPLERENONE. [Concomitant]
     Active Substance: EPLERENONE
  2. OPSUMIT [Suspect]
     Active Substance: MACITENTAN
     Indication: PULMONARY ARTERIAL HYPERTENSION
     Dosage: 10 MG, QD
     Route: 048
     Dates: start: 20170719, end: 20171113
  3. OPSUMIT [Suspect]
     Active Substance: MACITENTAN
     Dosage: 5 MG, QD, 1/2 TABLET
     Route: 048

REACTIONS (4)
  - Peripheral swelling [Unknown]
  - Oedema [Recovering/Resolving]
  - Weight increased [Recovering/Resolving]
  - Fatigue [Unknown]
